FAERS Safety Report 14773258 (Version 1)
Quarter: 2018Q2

REPORT INFORMATION
  Report Type: Spontaneous
  Country: US (occurrence: US)
  Receive Date: 20180418
  Receipt Date: 20180418
  Transmission Date: 20180711
  Serious: No
  Sender: FDA-Public Use
  Company Number: US-TEVA-777223ACC

PATIENT
  Sex: Female

DRUGS (3)
  1. BUPROPION. [Suspect]
     Active Substance: BUPROPION
     Route: 065
  2. ESCITALOPRAM [Suspect]
     Active Substance: ESCITALOPRAM OXALATE
     Route: 065
  3. CLONAZEPAM. [Suspect]
     Active Substance: CLONAZEPAM
     Route: 065

REACTIONS (2)
  - Adverse event [Unknown]
  - Drug ineffective [Unknown]
